FAERS Safety Report 12829338 (Version 1)
Quarter: 2016Q4

REPORT INFORMATION
  Report Type: Spontaneous
  Country: IT (occurrence: IT)
  Receive Date: 20161007
  Receipt Date: 20161007
  Transmission Date: 20170207
  Serious: Yes (Other)
  Sender: FDA-Public Use
  Company Number: IT-GLAXOSMITHKLINE-IT2016GSK145890

PATIENT
  Age: 54 Year
  Sex: Female

DRUGS (5)
  1. OKI [Suspect]
     Active Substance: KETOPROFEN LYSINE
     Indication: PERIARTHRITIS CALCAREA
     Dosage: 1 DF, UNK
     Route: 048
     Dates: start: 20160828, end: 20160828
  2. EUTIROX [Suspect]
     Active Substance: LEVOTHYROXINE SODIUM
     Indication: THYROIDECTOMY
     Dosage: 125 ?G, UNK
     Route: 048
  3. BENTELAN [Concomitant]
     Active Substance: BETAMETHASONE SODIUM PHOSPHATE
  4. VOLTAREN [Suspect]
     Active Substance: DICLOFENAC SODIUM
     Indication: PERIARTHRITIS CALCAREA
     Dosage: 50 MG, UNK
     Route: 048
     Dates: start: 20160828, end: 20160828
  5. PROPRANOLOL [Concomitant]
     Active Substance: PROPRANOLOL\PROPRANOLOL HYDROCHLORIDE

REACTIONS (7)
  - Palpitations [Recovered/Resolved]
  - Dyspnoea [Unknown]
  - Hyperthyroidism [Recovered/Resolved]
  - Asthenia [Unknown]
  - Dry mouth [Unknown]
  - Hyperventilation [Unknown]
  - Increased appetite [Unknown]

NARRATIVE: CASE EVENT DATE: 20160828
